FAERS Safety Report 22242453 (Version 2)
Quarter: 2023Q2

REPORT INFORMATION
  Report Type: Spontaneous
  Country: SK (occurrence: SK)
  Receive Date: 20230422
  Receipt Date: 20230519
  Transmission Date: 20230722
  Serious: Yes (Death)
  Sender: FDA-Public Use
  Company Number: SK-JNJFOC-20230446654

PATIENT
  Age: 73 Year
  Sex: Male

DRUGS (12)
  1. ZYTIGA [Suspect]
     Active Substance: ABIRATERONE ACETATE
     Indication: Prostate cancer metastatic
     Route: 048
     Dates: start: 202202
  2. PREDNISONE [Concomitant]
     Active Substance: PREDNISONE
  3. ASPIRIN [Concomitant]
     Active Substance: ASPIRIN
  4. XGEVA [Concomitant]
     Active Substance: DENOSUMAB
     Dates: start: 202204
  5. ATORVASTATIN [Concomitant]
     Active Substance: ATORVASTATIN
  6. PANTOPRAZOLE SODIUM [Concomitant]
     Active Substance: PANTOPRAZOLE SODIUM
  7. PREGABALIN [Concomitant]
     Active Substance: PREGABALIN
  8. METFORMIN HYDROCHLORIDE [Concomitant]
     Active Substance: METFORMIN HYDROCHLORIDE
  9. FUROSEMIDE [Concomitant]
     Active Substance: FUROSEMIDE
  10. KCL [Concomitant]
     Active Substance: POTASSIUM CHLORIDE
  11. MONOSAN [Concomitant]
  12. TICAGRELOR [Concomitant]
     Active Substance: TICAGRELOR

REACTIONS (1)
  - Prostate cancer metastatic [Fatal]
